FAERS Safety Report 12527160 (Version 2)
Quarter: 2017Q3

REPORT INFORMATION
  Report Type: Spontaneous
  Country: US (occurrence: US)
  Receive Date: 20160705
  Receipt Date: 20170815
  Transmission Date: 20171127
  Serious: Yes (Other)
  Sender: FDA-Public Use
  Company Number: US-SA-2016SA122130

PATIENT
  Age: 67 Year
  Sex: Female

DRUGS (4)
  1. PRALUENT [Suspect]
     Active Substance: ALIROCUMAB
     Indication: HYPERLIPIDAEMIA
     Route: 058
     Dates: start: 20160503
  2. ALIROCUMAB PREFILLED PEN [Suspect]
     Active Substance: ALIROCUMAB
     Indication: HYPERLIPIDAEMIA
     Dates: start: 20160503
  3. PRALUENT [Suspect]
     Active Substance: ALIROCUMAB
     Indication: ARTERIOSCLEROSIS
     Route: 058
     Dates: start: 20160503
  4. ALIROCUMAB PREFILLED PEN [Suspect]
     Active Substance: ALIROCUMAB
     Indication: ARTERIOSCLEROSIS
     Dates: start: 20160503

REACTIONS (3)
  - Myocardial infarction [Recovering/Resolving]
  - Surgery [Unknown]
  - Pulmonary thrombosis [Recovering/Resolving]

NARRATIVE: CASE EVENT DATE: 20160603
